FAERS Safety Report 4846847-9 (Version None)
Quarter: 2005Q4

REPORT INFORMATION
  Report Type: 
  Country: None (occurrence: None)
  Receive Date: 20051207
  Receipt Date: 20041207
  Transmission Date: 20060501
  Serious: No
  Sender: FDA-Public Use
  Company Number: US-BRISTOL-MYERS SQUIBB COMPANY-12788220

PATIENT
  Sex: Female

DRUGS (1)
  1. VIDEX [Suspect]
     Indication: SINUSITIS
     Route: 048
     Dates: start: 20041130, end: 20041130

REACTIONS (1)
  - DIARRHOEA [None]
